FAERS Safety Report 9702849 (Version 1)
Quarter: 2013Q4

REPORT INFORMATION
  Report Type: Report from Study
  Country: US (occurrence: US)
  Receive Date: 20131121
  Receipt Date: 20131121
  Transmission Date: 20140711
  Serious: Yes (Hospitalization)
  Sender: FDA-Public Use
  Company Number: US-ABBVIE-13P-163-1168908-00

PATIENT
  Sex: Female

DRUGS (8)
  1. HUMIRA [Suspect]
     Indication: CROHN^S DISEASE
     Dates: start: 20130831
  2. IMURAN [Suspect]
     Indication: PRODUCT USED FOR UNKNOWN INDICATION
  3. BENTYL [Concomitant]
     Indication: PRODUCT USED FOR UNKNOWN INDICATION
  4. XANAX [Concomitant]
     Indication: PRODUCT USED FOR UNKNOWN INDICATION
     Dosage: EVERY PM
  5. HYDROCODONE [Concomitant]
     Indication: PAIN
  6. CYMBALTA [Concomitant]
     Indication: PAIN
  7. CYMBALTA [Concomitant]
     Indication: ANTIDEPRESSANT THERAPY
  8. IRON INFUSION [Concomitant]
     Indication: PRODUCT USED FOR UNKNOWN INDICATION
     Dosage: MONTHLY

REACTIONS (3)
  - Intestinal obstruction [Recovering/Resolving]
  - Nausea [Unknown]
  - Diarrhoea [Unknown]
